FAERS Safety Report 6493700-3 (Version None)
Quarter: 2009Q4

REPORT INFORMATION
  Report Type: 
  Country: None (occurrence: None)
  Receive Date: 20091214
  Receipt Date: 20091209
  Transmission Date: 20100525
  Serious: Yes (Hospitalization)
  Sender: FDA-Public Use
  Company Number: D0065035A

PATIENT
  Sex: Female
  Weight: 85 kg

DRUGS (3)
  1. MELPHALAN [Suspect]
     Indication: MULTIPLE MYELOMA
     Dosage: 13MGM2 PER DAY
     Route: 042
     Dates: start: 20090807, end: 20090827
  2. PREDNISON [Suspect]
     Indication: MULTIPLE MYELOMA
     Dosage: 52.6MGM2 PER DAY
     Route: 048
     Dates: start: 20090807, end: 20090830
  3. METOCLOPRAMIDE HYDROCHLORIDE [Concomitant]
     Indication: PROPHYLAXIS
     Dosage: 10MG PER DAY
     Route: 042
     Dates: start: 20090807

REACTIONS (1)
  - GENERAL PHYSICAL HEALTH DETERIORATION [None]
